FAERS Safety Report 9217071 (Version 2)
Quarter: 2013Q4

REPORT INFORMATION
  Report Type: Spontaneous
  Country: GB (occurrence: GB)
  Receive Date: 20130408
  Receipt Date: 20131015
  Transmission Date: 20140711
  Serious: Yes (Other)
  Sender: FDA-Public Use
  Company Number: GB-PFIZER INC-2013106833

PATIENT
  Age: 71 Year
  Sex: Male
  Weight: 118 kg

DRUGS (4)
  1. LIPITOR [Suspect]
     Indication: HYPERCHOLESTEROLAEMIA
     Dosage: 40 MG, UNK
     Route: 048
     Dates: end: 201211
  2. LIPITOR [Suspect]
     Dosage: 80 MG, UNK
     Route: 048
     Dates: start: 201211
  3. THYROXINE [Concomitant]
  4. METFORMIN [Concomitant]
     Indication: DIABETES MELLITUS

REACTIONS (2)
  - Yellow skin [Recovering/Resolving]
  - Renal impairment [Unknown]
